FAERS Safety Report 9063333 (Version 1)
Quarter: 2013Q1

REPORT INFORMATION
  Report Type: Report from Study
  Country: US (occurrence: US)
  Receive Date: 20130129
  Receipt Date: 20130129
  Transmission Date: 20140127
  Serious: No
  Sender: FDA-Public Use
  Company Number: US-ABBOTT-12P-163-0944546-00

PATIENT
  Age: 70 Year
  Sex: Male

DRUGS (9)
  1. HUMIRA 40 MG/0.8 ML PEN [Suspect]
     Indication: CROHN^S DISEASE
     Route: 058
     Dates: start: 20120310
  2. METHOTREXATE [Concomitant]
     Indication: PRODUCT USED FOR UNKNOWN INDICATION
     Dosage: 15MG EVERY WEEK
  3. FOLIC ACID [Concomitant]
     Indication: PRODUCT USED FOR UNKNOWN INDICATION
     Dosage: 1MG DAILY
  4. APRISO [Concomitant]
     Indication: CROHN^S DISEASE
  5. ASPIRIN [Concomitant]
     Indication: PRODUCT USED FOR UNKNOWN INDICATION
     Dosage: LOW DOSE
  6. GLIPIZIDE [Concomitant]
     Indication: DIABETES MELLITUS
     Dosage: DAILY
  7. METFORMIN [Concomitant]
     Indication: DIABETES MELLITUS
     Dosage: DAILY
  8. NEURONTIN [Concomitant]
     Indication: NEUROPATHY PERIPHERAL
     Dosage: DAILY
  9. PLAQUENIL [Concomitant]
     Indication: ARTHRITIS
     Dosage: DAILY

REACTIONS (2)
  - Frequent bowel movements [Not Recovered/Not Resolved]
  - Rectal haemorrhage [Not Recovered/Not Resolved]
